FAERS Safety Report 20316043 (Version 1)
Quarter: 2022Q1

REPORT INFORMATION
  Report Type: Spontaneous
  Country: DE (occurrence: DE)
  Receive Date: 20220110
  Receipt Date: 20220110
  Transmission Date: 20220423
  Serious: Yes (Other)
  Sender: FDA-Public Use
  Company Number: DE-MLMSERVICE-20211227-3288945-1

PATIENT
  Age: 9 Year
  Sex: Male

DRUGS (3)
  1. LAMOTRIGINE [Suspect]
     Active Substance: LAMOTRIGINE
     Indication: Epilepsy
     Dosage: 0.95 MILLIGRAM/KILOGRAM, ONCE A DAY
     Route: 065
  2. VALPROIC ACID [Suspect]
     Active Substance: VALPROIC ACID
     Indication: Epilepsy
     Dosage: 18.75 MILLIGRAM/KILOGRAM, ONCE A DAY
     Route: 065
  3. VALPROIC ACID [Suspect]
     Active Substance: VALPROIC ACID
     Dosage: 14 MILLIGRAM/KILOGRAM, ONCE A DAY
     Route: 065

REACTIONS (9)
  - Disturbance in attention [Recovered/Resolved]
  - Disinhibition [Recovered/Resolved]
  - Psychomotor hyperactivity [Recovered/Resolved]
  - Treatment failure [Recovered/Resolved]
  - Behaviour disorder [Recovered/Resolved]
  - Restlessness [Recovered/Resolved]
  - Aggression [Recovered/Resolved]
  - Condition aggravated [Recovered/Resolved]
  - Mental disorder [Recovered/Resolved]
